FAERS Safety Report 8495989-8 (Version None)
Quarter: 2012Q3

REPORT INFORMATION
  Report Type: 
  Country: None (occurrence: None)
  Receive Date: 20120709
  Receipt Date: 20120625
  Transmission Date: 20120928
  Serious: Yes (Other)
  Sender: FDA-Public Use
  Company Number: GB-TEVA-344913ISR

PATIENT
  Age: 40 Year
  Sex: Female

DRUGS (5)
  1. VALPROIC ACID [Suspect]
  2. FOLIC ACID [Suspect]
     Dosage: DOSAGE: AT NIGHT
  3. ABILIFY [Suspect]
     Dosage: REDUCED TO 2.5MG AT NIGHT
  4. ABILIFY [Suspect]
  5. NORETHINDRONE [Suspect]

REACTIONS (2)
  - PREGNANCY [None]
  - ABORTION SPONTANEOUS [None]
